FAERS Safety Report 25529947 (Version 1)
Quarter: 2025Q3

REPORT INFORMATION
  Report Type: Spontaneous
  Country: CA (occurrence: CA)
  Receive Date: 20250708
  Receipt Date: 20250708
  Transmission Date: 20251021
  Serious: Yes (Life-Threatening, Hospitalization)
  Sender: REGENERON
  Company Number: CA-REGENERON PHARMACEUTICALS, INC.-2025-109043

PATIENT
  Age: 52 Year
  Sex: Female

DRUGS (1)
  1. LIBTAYO [Suspect]
     Active Substance: CEMIPLIMAB-RWLC
     Indication: Product used for unknown indication
     Route: 042

REACTIONS (2)
  - Complications of transplanted kidney [Not Recovered/Not Resolved]
  - Inflammation [Not Recovered/Not Resolved]
